FAERS Safety Report 4418979-0 (Version None)
Quarter: 2004Q3

REPORT INFORMATION
  Report Type: 
  Country: None (occurrence: None)
  Receive Date: 20040806
  Receipt Date: 20040806
  Transmission Date: 20050211
  Serious: Yes (Hospitalization)
  Sender: FDA-Public Use
  Company Number: None

PATIENT
  Age: 59 Year
  Sex: Male
  Weight: 104.3273 kg

DRUGS (6)
  1. TAXOL [Suspect]
     Indication: NON-SMALL CELL LUNG CANCER
     Dosage: 450 MG IV
     Route: 042
     Dates: start: 20040609
  2. TAXOL [Suspect]
     Indication: NON-SMALL CELL LUNG CANCER
     Dosage: 450 MG IV
     Route: 042
     Dates: start: 20040712
  3. TAXOL [Suspect]
     Indication: NON-SMALL CELL LUNG CANCER
     Dosage: 450 MG IV
     Route: 042
     Dates: start: 20040802
  4. CARBOPLATIN [Suspect]
     Dosage: 700 MG IV
     Route: 042
     Dates: start: 20040609
  5. CARBOPLATIN [Suspect]
     Dosage: 700 MG IV
     Route: 042
     Dates: start: 20040712
  6. CARBOPLATIN [Suspect]
     Dosage: 700 MG IV
     Route: 042
     Dates: start: 20040802

REACTIONS (6)
  - CHEST DISCOMFORT [None]
  - DYSPNOEA [None]
  - FEELING ABNORMAL [None]
  - HYPERHIDROSIS [None]
  - HYPOTENSION [None]
  - INCREASED UPPER AIRWAY SECRETION [None]
